FAERS Safety Report 20840983 (Version 2)
Quarter: 2022Q2

REPORT INFORMATION
  Report Type: Spontaneous
  Country: US (occurrence: US)
  Receive Date: 20220517
  Receipt Date: 20220520
  Transmission Date: 20220721
  Serious: Yes (Hospitalization)
  Sender: FDA-Public Use
  Company Number: US-Merck Healthcare KGaA-9321927

PATIENT
  Age: 59 Year
  Sex: Male

DRUGS (18)
  1. GEMCITABINE HYDROCHLORIDE [Suspect]
     Active Substance: GEMCITABINE HYDROCHLORIDE
     Indication: Product used for unknown indication
     Dosage: UNK, UNKNOWN
     Route: 065
     Dates: start: 20220419
  2. DOCETAXEL [Suspect]
     Active Substance: DOCETAXEL
     Indication: Product used for unknown indication
     Dosage: UNK UNK, UNKNOWN
     Route: 065
     Dates: start: 20220419
  3. CETUXIMAB [Concomitant]
     Active Substance: CETUXIMAB
     Indication: Squamous cell carcinoma of head and neck
     Dosage: 400 MG/M2, UNKNOWN
     Route: 042
     Dates: start: 20211019, end: 20211019
  4. CETUXIMAB [Concomitant]
     Active Substance: CETUXIMAB
     Dosage: 250 MG/M2, WEEKLY (1/W)
     Route: 042
     Dates: start: 20211026, end: 20220329
  5. LORAZEPAM [Concomitant]
     Active Substance: LORAZEPAM
     Indication: Anxiety
     Dosage: 1 MG, UNK
     Route: 048
     Dates: start: 20210209
  6. VENLAFAXINE HYDROCHLORIDE [Concomitant]
     Active Substance: VENLAFAXINE HYDROCHLORIDE
     Indication: Depression
     Dosage: 75 MG, DAILY
     Route: 048
     Dates: start: 20211007
  7. OXYCODONE HYDROCHLORIDE [Concomitant]
     Active Substance: OXYCODONE HYDROCHLORIDE
     Indication: Tumour pain
     Dosage: 20 MG, EVERY 4 HRS
     Route: 048
     Dates: start: 20210208
  8. SENNA LEAF [Concomitant]
     Active Substance: SENNA LEAF
     Indication: Constipation
     Dosage: 8.6 MG, DAILY
     Route: 048
     Dates: start: 20210727
  9. SODIUM FLUORIDE [Concomitant]
     Active Substance: SODIUM FLUORIDE
     Indication: Impaired healing
     Dosage: 1.1 %, UNK
     Route: 004
     Dates: start: 20210119
  10. AMMONIUM LACTATE [Concomitant]
     Active Substance: AMMONIUM LACTATE
     Indication: Dermatitis acneiform
     Dosage: 12 %, UNK
     Route: 061
     Dates: start: 20211115
  11. GABAPENTIN [Concomitant]
     Active Substance: GABAPENTIN
     Indication: Tumour pain
     Dosage: 250 MG, UNK
     Route: 048
     Dates: start: 20210210
  12. LIDOCAINE HYDROCHLORIDE [Concomitant]
     Active Substance: LIDOCAINE HYDROCHLORIDE
     Indication: Mucosal inflammation
     Dosage: 2 %, EVERY 4 HRS
     Dates: start: 20211109
  13. DIPHENHYDRAMINE HYDROCHLORIDE\LIDOCAINE HYDROCHLORIDE\NYSTATIN [Concomitant]
     Active Substance: DIPHENHYDRAMINE HYDROCHLORIDE\LIDOCAINE HYDROCHLORIDE\NYSTATIN
     Indication: Tumour pain
     Dosage: 5 ML, UNK
     Route: 061
     Dates: start: 20210504
  14. MOMETASONE [Concomitant]
     Active Substance: MOMETASONE
     Indication: Dermatitis acneiform
     Dosage: 1 %, DAILY
     Route: 061
     Dates: start: 20211102
  15. KLOR-CON [Concomitant]
     Active Substance: POTASSIUM CHLORIDE
     Indication: Hypokalaemia
     Dosage: 20 MEQ, DAILY
     Route: 048
     Dates: start: 20211130
  16. POTASSIUM PHOSPHATE, MONOBASIC [Concomitant]
     Active Substance: POTASSIUM PHOSPHATE, MONOBASIC
     Indication: Hypokalaemia
     Dosage: 250 MG, UNK
     Route: 048
     Dates: start: 20211116
  17. DIFLUCAN [Concomitant]
     Active Substance: FLUCONAZOLE
     Indication: Mucosal inflammation
     Dosage: 100 MG, DAILY
     Route: 048
     Dates: start: 20220322
  18. FLUCONAZOLE [Concomitant]
     Active Substance: FLUCONAZOLE
     Indication: Candida infection
     Dosage: 100 MG, DAILY
     Route: 048
     Dates: start: 20220301

REACTIONS (1)
  - Mucosal inflammation [Recovered/Resolved]

NARRATIVE: CASE EVENT DATE: 20220503
